FAERS Safety Report 13200225 (Version 1)
Quarter: 2017Q1

REPORT INFORMATION
  Report Type: Spontaneous
  Country: US (occurrence: US)
  Receive Date: 20170208
  Receipt Date: 20170208
  Transmission Date: 20170428
  Serious: Yes (Other)
  Sender: FDA-Public Use
  Company Number: US-TEVA-738308ACC

PATIENT
  Age: 29 Year
  Sex: Female
  Weight: 85.81 kg

DRUGS (3)
  1. FLONASE [Concomitant]
     Active Substance: FLUTICASONE PROPIONATE
     Indication: HYPERSENSITIVITY
  2. PARAGARD T 380A [Suspect]
     Active Substance: COPPER
     Indication: CONTRACEPTION
     Dates: start: 20160602, end: 20160928
  3. RETIN-A [Concomitant]
     Active Substance: TRETINOIN
     Indication: ACNE

REACTIONS (6)
  - Fungal infection [Unknown]
  - Device dislocation [Recovered/Resolved]
  - Pain [Unknown]
  - Vaginal discharge [Unknown]
  - Discomfort [Unknown]
  - Vaginal infection [Unknown]

NARRATIVE: CASE EVENT DATE: 20160629
